FAERS Safety Report 5596578-5 (Version None)
Quarter: 2008Q1

REPORT INFORMATION
  Report Type: 
  Country: None (occurrence: None)
  Receive Date: 20080118
  Receipt Date: 20080109
  Transmission Date: 20080703
  Serious: Yes (Death)
  Sender: FDA-Public Use
  Company Number: US-PFIZER INC-2008002240

PATIENT
  Sex: Female

DRUGS (3)
  1. CELEBREX [Suspect]
     Dates: start: 20070501, end: 20080101
  2. ZYRTEC [Suspect]
     Dates: start: 20070501, end: 20080101
  3. GLUCOTROL [Suspect]

REACTIONS (1)
  - DEATH [None]
